FAERS Safety Report 6593923-9 (Version None)
Quarter: 2010Q1

REPORT INFORMATION
  Report Type: 
  Country: None (occurrence: None)
  Receive Date: 20100218
  Receipt Date: 20100218
  Transmission Date: 20100710
  Serious: No
  Sender: FDA-Public Use
  Company Number: None

PATIENT
  Age: 62 Year
  Sex: Male

DRUGS (1)
  1. DIGOXIN [Suspect]
     Indication: CORONARY ARTERIAL STENT INSERTION
     Dosage: 1 TAB EVERY DAY PO
     Route: 048
     Dates: start: 20070116, end: 20090410

REACTIONS (2)
  - DYSPNOEA [None]
  - PRODUCT QUALITY ISSUE [None]
